FAERS Safety Report 7500728-0 (Version None)
Quarter: 2011Q2

REPORT INFORMATION
  Report Type: 
  Country: None (occurrence: None)
  Receive Date: 20110524
  Receipt Date: 20110511
  Transmission Date: 20111010
  Serious: Yes (Hospitalization)
  Sender: FDA-Public Use
  Company Number: PHHY2011FR39805

PATIENT
  Sex: Female

DRUGS (4)
  1. METHOTREXATE [Suspect]
  2. HUMIRA [Suspect]
  3. ARAVA [Suspect]
  4. CORTICOSTEROIDS [Suspect]

REACTIONS (11)
  - DISSEMINATED TUBERCULOSIS [None]
  - WEIGHT DECREASED [None]
  - PYREXIA [None]
  - LUNG NEOPLASM [None]
  - NERVOUS SYSTEM DISORDER [None]
  - GRANULOMA [None]
  - PNEUMOCYSTIS JIROVECI PNEUMONIA [None]
  - DYSPNOEA [None]
  - CSF PROTEIN INCREASED [None]
  - CENTRAL NERVOUS SYSTEM LESION [None]
  - LYMPHADENOPATHY [None]
